FAERS Safety Report 12890646 (Version 1)
Quarter: 2016Q4

REPORT INFORMATION
  Report Type: Spontaneous
  Country: US (occurrence: US)
  Receive Date: 20161027
  Receipt Date: 20161027
  Transmission Date: 20170207
  Serious: No
  Sender: FDA-Public Use
  Company Number: US-JAZZ-2016-US-015752

PATIENT
  Sex: Female

DRUGS (15)
  1. XYREM [Suspect]
     Active Substance: SODIUM OXYBATE
     Indication: CATAPLEXY
     Dosage: DOSE ADJUSTMENTS
     Route: 048
     Dates: start: 201507, end: 201605
  2. DEPAKOTE [Concomitant]
     Active Substance: DIVALPROEX SODIUM
  3. TOPIRAMATE. [Concomitant]
     Active Substance: TOPIRAMATE
  4. VITAMIN D [Concomitant]
     Active Substance: CHOLECALCIFEROL
  5. XYREM [Suspect]
     Active Substance: SODIUM OXYBATE
     Indication: NARCOLEPSY
     Dosage: 3 G, BID
     Route: 048
     Dates: start: 201506, end: 201507
  6. FLONASE ALLERGY RELIEF [Suspect]
     Active Substance: FLUTICASONE PROPIONATE
     Indication: PRODUCT USED FOR UNKNOWN INDICATION
     Dosage: UNK
     Dates: start: 20150622, end: 201602
  7. DEPAKOTE [Concomitant]
     Active Substance: DIVALPROEX SODIUM
  8. EXCEDRIN MIGRAINE [Concomitant]
     Active Substance: ACETAMINOPHEN\ASPIRIN\CAFFEINE
  9. VITAMIN D3 [Concomitant]
     Active Substance: CHOLECALCIFEROL
  10. RHINOCORT ALLERGY [Concomitant]
     Active Substance: BUDESONIDE
  11. IMITREX [Concomitant]
     Active Substance: SUMATRIPTAN SUCCINATE
  12. NUVIGIL [Concomitant]
     Active Substance: ARMODAFINIL
  13. BUPROPION HCL [Concomitant]
     Active Substance: BUPROPION HYDROCHLORIDE
  14. SUMATRIPTAN. [Concomitant]
     Active Substance: SUMATRIPTAN
  15. XYREM [Suspect]
     Active Substance: SODIUM OXYBATE
     Dosage: 2.75 G, TID
     Route: 048
     Dates: start: 201605

REACTIONS (2)
  - Drug ineffective [Unknown]
  - Vitamin D decreased [Recovering/Resolving]
